FAERS Safety Report 5592310-X (Version None)
Quarter: 2008Q1

REPORT INFORMATION
  Report Type: 
  Country: None (occurrence: None)
  Receive Date: 20080111
  Receipt Date: 20071225
  Transmission Date: 20080703
  Serious: Yes (Death)
  Sender: FDA-Public Use
  Company Number: 2008AP000029

PATIENT
  Age: 48 Year
  Sex: Male

DRUGS (7)
  1. LORAZEPAM [Suspect]
  2. ACETAMINOPHEN [Concomitant]
  3. BISACODYL                 (BISACODYL) [Concomitant]
  4. MORPHINE [Concomitant]
  5. SERTRALINE HYDROCHLORIDE [Suspect]
  6. CODEINE                       (CODEINE) 60 MG [Suspect]
     Dosage: 60 MG
  7. CLONAZEPAM [Concomitant]

REACTIONS (5)
  - ARTERIOSCLEROSIS CORONARY ARTERY [None]
  - BRONCHOPNEUMONIA [None]
  - DRUG TOXICITY [None]
  - PULMONARY OEDEMA [None]
  - SEROTONIN SYNDROME [None]
